FAERS Safety Report 10358437 (Version 2)
Quarter: 2014Q3

REPORT INFORMATION
  Report Type: Report from Study
  Country: JP (occurrence: JP)
  Receive Date: 20140801
  Receipt Date: 20140903
  Transmission Date: 20150326
  Serious: Yes (Death)
  Sender: FDA-Public Use
  Company Number: JP-009507513-1408JPN000278

PATIENT
  Sex: Male
  Weight: 40 kg

DRUGS (7)
  1. TEMOZOLOMIDE [Suspect]
     Active Substance: TEMOZOLOMIDE
     Dosage: 150 MG/M2, QD, CYCLE 3
     Route: 041
     Dates: start: 20130529, end: 20130602
  2. TEGRETOL [Concomitant]
     Active Substance: CARBAMAZEPINE
     Dosage: UNK, UNKNOWN (FORMULATION: POR)
     Route: 048
  3. PREDONINE [Concomitant]
     Active Substance: PREDNISOLONE\PREDNISOLONE ACETATE\PREDNISOLONE SODIUM SUCCINATE
     Dosage: UNK, UNKNOWN (FORMULATION POR)
     Route: 048
  4. CALBLOCK [Concomitant]
     Active Substance: AZELNIDIPINE
     Dosage: UNK, UNKNOWN (FORMILATION POR)
     Route: 048
  5. TEMOZOLOMIDE [Suspect]
     Active Substance: TEMOZOLOMIDE
     Dosage: 150 MG/M2, QD, CYCLE 2
     Route: 041
     Dates: start: 20130415, end: 20130419
  6. FAMOTIDINE. [Concomitant]
     Active Substance: FAMOTIDINE
     Dosage: UNK, UNKNOWN (FORMULATION: POR)
     Route: 048
  7. TEMOZOLOMIDE [Suspect]
     Active Substance: TEMOZOLOMIDE
     Indication: GLIOBLASTOMA MULTIFORME
     Dosage: 75 MG/M2, QD, CYCLE 1
     Route: 041
     Dates: start: 20130318, end: 20130322

REACTIONS (1)
  - Disease progression [Fatal]
